FAERS Safety Report 23078200 (Version 3)
Quarter: 2024Q2

REPORT INFORMATION
  Report Type: Spontaneous
  Country: NL (occurrence: NL)
  Receive Date: 20231018
  Receipt Date: 20240416
  Transmission Date: 20240715
  Serious: Yes (Other)
  Sender: FDA-Public Use
  Company Number: None

PATIENT
  Age: 67 Year
  Sex: Male
  Weight: 62 kg

DRUGS (2)
  1. DULCOLAX STIMULANT LAXATIVE [Suspect]
     Active Substance: BISACODYL
     Indication: Colonoscopy
     Dosage: 1 UNIT 1 X PER DAY?MSR 5 MG
     Dates: start: 20230716, end: 20230717
  2. MACROGOL/SALTS PDR V DRINK (PLEINVUE) / PLEINVUE POWDER FOR DRINK IN S [Concomitant]
     Indication: Product used for unknown indication
     Dosage: POWDER FOR PER ORAL SOLUTION

REACTIONS (1)
  - Colitis ischaemic [Recovered/Resolved]
